FAERS Safety Report 16460003 (Version 6)
Quarter: 2020Q2

REPORT INFORMATION
  Report Type: Spontaneous
  Country: AU (occurrence: AU)
  Receive Date: 20190620
  Receipt Date: 20200505
  Transmission Date: 20200713
  Serious: Yes (Hospitalization)
  Sender: FDA-Public Use
  Company Number: AU-CELGENEUS-AUS-20180503944

PATIENT
  Age: 81 Year
  Sex: Male

DRUGS (33)
  1. PLACEBO [Concomitant]
     Active Substance: UNSPECIFIED INGREDIENT
     Route: 048
     Dates: start: 20180709
  2. PARACETAMOL [Concomitant]
     Active Substance: ACETAMINOPHEN
     Indication: PAIN PROPHYLAXIS
     Route: 048
     Dates: start: 20180312
  3. TRANEXAMIC ACID. [Concomitant]
     Active Substance: TRANEXAMIC ACID
     Indication: RECTAL HAEMORRHAGE
     Dosage: 1 GRAM
     Route: 048
     Dates: start: 20180317, end: 20180322
  4. MAGMIN [Concomitant]
     Active Substance: MAGNESIUM ASPARTATE
     Indication: MUSCLE SPASMS
     Route: 048
     Dates: start: 20180325
  5. PHOSPHATE SANDOZ [Concomitant]
     Active Substance: SODIUM PHOSPHATE, MONOBASIC, ANHYDROUS
     Indication: PROPHYLAXIS
     Route: 048
     Dates: start: 20180325
  6. PLACEBO [Concomitant]
     Active Substance: UNSPECIFIED INGREDIENT
     Indication: ACUTE MYELOID LEUKAEMIA
     Route: 048
     Dates: start: 20180313, end: 20180313
  7. TEMAZEPAM. [Concomitant]
     Active Substance: TEMAZEPAM
     Indication: INSOMNIA
  8. RAMIPRIL. [Concomitant]
     Active Substance: RAMIPRIL
     Indication: MYOCARDIAL ISCHAEMIA
     Dosage: 5 MILLIGRAM
     Route: 048
     Dates: start: 20180312
  9. METOCLOPRAMIDE. [Concomitant]
     Active Substance: METOCLOPRAMIDE
     Indication: PROPHYLAXIS OF NAUSEA AND VOMITING
     Route: 048
     Dates: start: 20180312
  10. FRUSEMIDE [Concomitant]
     Active Substance: FUROSEMIDE
     Indication: FLUID RETENTION
     Dosage: 20 MILLIGRAM
     Route: 017
     Dates: start: 20180313, end: 20180313
  11. ONDANSETRON [Concomitant]
     Active Substance: ONDANSETRON
     Indication: PROPHYLAXIS OF NAUSEA AND VOMITING
     Dosage: 4-8MG
     Route: 048
     Dates: start: 20180323
  12. PHENERGAN [Concomitant]
     Active Substance: PROMETHAZINE HYDROCHLORIDE
     Indication: PREMEDICATION
     Route: 048
     Dates: start: 20180512, end: 20180512
  13. GRANULOCYTE COLONY STIMULATING FACTOR [Concomitant]
     Active Substance: GRANULOCYTE COLONY-STIMULATING FACTOR NOS
     Indication: NEUTROPHIL COUNT DECREASED
     Dosage: 480 MCG
     Route: 058
     Dates: start: 20180406
  14. AZACITIDINE. [Suspect]
     Active Substance: AZACITIDINE
     Route: 058
     Dates: start: 20180709
  15. CRESTOR [Concomitant]
     Active Substance: ROSUVASTATIN CALCIUM
     Indication: MYOCARDIAL ISCHAEMIA
     Dosage: 20 MILLIGRAM
     Route: 048
     Dates: start: 20130312, end: 20180703
  16. ALLOPURINOL. [Concomitant]
     Active Substance: ALLOPURINOL
     Indication: PROPHYLAXIS
     Dosage: 300 MILLIGRAM
     Route: 048
     Dates: start: 20180313, end: 20180403
  17. MOVICOL [Concomitant]
     Active Substance: POLYETHYLENE GLYCOL 3350\POTASSIUM CHLORIDE\SODIUM BICARBONATE\SODIUM CHLORIDE
     Indication: CONSTIPATION PROPHYLAXIS
     Route: 048
     Dates: start: 20180320
  18. DIAZEPAM. [Concomitant]
     Active Substance: DIAZEPAM
     Indication: PROPHYLAXIS
     Dosage: 2.5-5MG
     Route: 048
     Dates: start: 20180305
  19. TEMAZEPAM. [Concomitant]
     Active Substance: TEMAZEPAM
     Indication: PROPHYLAXIS
     Route: 048
     Dates: start: 20180323
  20. COLOXYL WITH SENNA [Concomitant]
     Active Substance: DOCUSATE SODIUM\SENNOSIDES A AND B
     Indication: CONSTIPATION PROPHYLAXIS
     Route: 048
     Dates: start: 20180316
  21. KEFLEX [Concomitant]
     Active Substance: CEPHALEXIN
     Indication: CELLULITIS
     Dosage: 1500 MILLIGRAM
     Route: 048
     Dates: start: 20180305
  22. FRUSEMIDE [Concomitant]
     Active Substance: FUROSEMIDE
     Dosage: 40 MILLIGRAM
     Route: 048
     Dates: start: 20180312
  23. FRUSEMIDE [Concomitant]
     Active Substance: FUROSEMIDE
     Dosage: 20 MILLIGRAM
     Route: 048
     Dates: start: 20180510, end: 20180530
  24. TRANEXAMIC ACID. [Concomitant]
     Active Substance: TRANEXAMIC ACID
     Dosage: 500 MILLIGRAM
     Route: 048
     Dates: start: 20180326, end: 20180702
  25. PANTOPRAZOLE [Concomitant]
     Active Substance: PANTOPRAZOLE
     Indication: GASTROOESOPHAGEAL REFLUX PROPHYLAXIS
     Dosage: 40 MILLIGRAM
     Route: 048
     Dates: start: 20180329
  26. PLACEBO [Concomitant]
     Active Substance: UNSPECIFIED INGREDIENT
     Route: 048
     Dates: start: 20180314, end: 20180314
  27. AVAPRO [Concomitant]
     Active Substance: IRBESARTAN
     Indication: HYPERTENSION
     Dosage: 1 TABLET
     Route: 048
     Dates: start: 20130312
  28. METFORMIN [Concomitant]
     Active Substance: METFORMIN HYDROCHLORIDE
     Indication: TYPE 2 DIABETES MELLITUS
     Dosage: 1 GRAM
     Route: 048
     Dates: start: 20130312
  29. DIAZEPAM. [Concomitant]
     Active Substance: DIAZEPAM
     Indication: ANXIETY
  30. GRANISETRON [Concomitant]
     Active Substance: GRANISETRON
     Indication: PREMEDICATION
     Route: 048
     Dates: start: 20180313
  31. CETIRIZINE [Concomitant]
     Active Substance: CETIRIZINE HYDROCHLORIDE
     Indication: PROPHYLAXIS
     Dosage: 10 MILLIGRAM
     Route: 048
     Dates: start: 20180515, end: 20180523
  32. AZACITIDINE. [Suspect]
     Active Substance: AZACITIDINE
     Indication: ACUTE MYELOID LEUKAEMIA
     Dosage: 75 MILLIGRAM/SQ. METER
     Route: 058
     Dates: start: 20180313, end: 20180513
  33. PLACEBO [Concomitant]
     Active Substance: UNSPECIFIED INGREDIENT
     Route: 048
     Dates: start: 20180315, end: 20180321

REACTIONS (3)
  - Bronchopulmonary aspergillosis [Not Recovered/Not Resolved]
  - Endocarditis [Not Recovered/Not Resolved]
  - Neutropenia [Recovered/Resolved]

NARRATIVE: CASE EVENT DATE: 20180501
